FAERS Safety Report 9842635 (Version 5)
Quarter: 2014Q3

REPORT INFORMATION
  Report Type: Report from Study
  Country: JP (occurrence: JP)
  Receive Date: 20140124
  Receipt Date: 20140724
  Transmission Date: 20150326
  Serious: Yes (Death, Life-Threatening, Hospitalization, Disabling, Other)
  Sender: FDA-Public Use
  Company Number: JP-BAYER-2013-140687

PATIENT
  Age: 74 Year
  Sex: Female
  Weight: 50 kg

DRUGS (10)
  1. WARFARIN [Concomitant]
     Active Substance: WARFARIN
     Indication: THROMBOSIS PROPHYLAXIS
     Dosage: DAILY DOSE 1.5 MG
     Route: 048
     Dates: start: 20130128, end: 20131107
  2. OXYCONTIN [Concomitant]
     Active Substance: OXYCODONE HYDROCHLORIDE
     Indication: COLON CANCER
     Dosage: DAILY DOSE 10 MG
     Route: 048
     Dates: start: 20131018, end: 20131121
  3. OXINORM [OXYCODONE HYDROCHLORIDE] [Concomitant]
     Indication: COLON CANCER
     Dosage: DAILY DOSE 2.5 MG
     Route: 048
     Dates: start: 20131010, end: 20131201
  4. STIVARGA [Suspect]
     Active Substance: REGORAFENIB
     Indication: COLON CANCER
     Dosage: 160 MG, QD (3 WEEKS ON, 1 WEEK OFF)
     Route: 048
     Dates: start: 20131025, end: 20131107
  5. HIRUDOID [Concomitant]
     Active Substance: GLYCOSAMINOGLYCANS
     Indication: DRUG TOXICITY PROPHYLAXIS
     Dosage: UNK
     Route: 061
     Dates: start: 20111230, end: 20131107
  6. MYSLEE [Concomitant]
     Active Substance: ZOLPIDEM TARTRATE
     Dosage: DAILY DOSE 5 MG
     Route: 048
     Dates: start: 20131101, end: 20131127
  7. HYPEN [Concomitant]
     Active Substance: ETODOLAC
     Indication: COLON CANCER
     Dosage: DAILY DOSE 800 MG
     Route: 048
     Dates: start: 20130913, end: 20131125
  8. MAGMITT [Concomitant]
     Active Substance: MAGNESIUM OXIDE
     Indication: CONSTIPATION PROPHYLAXIS
     Dosage: DAILY DOSE 1980 MG
     Route: 048
     Dates: start: 20131005, end: 20131107
  9. FENTANYL. [Concomitant]
     Active Substance: FENTANYL
     Dosage: DAILY DOSE .84 MG
     Route: 062
     Dates: start: 20131121, end: 20131202
  10. NEXIUM [Concomitant]
     Active Substance: ESOMEPRAZOLE MAGNESIUM
     Indication: COLON CANCER
     Dosage: DAILY DOSE 20 MG
     Route: 048
     Dates: start: 20130913, end: 20131107

REACTIONS (10)
  - Decreased appetite [Not Recovered/Not Resolved]
  - Rash [Unknown]
  - Rash [Unknown]
  - Colon cancer [Fatal]
  - Sepsis [Recovering/Resolving]
  - Stomatitis [Not Recovered/Not Resolved]
  - Aspartate aminotransferase increased [Recovering/Resolving]
  - Pyrexia [Recovered/Resolved]
  - Dysgeusia [Not Recovered/Not Resolved]
  - Pyrexia [Recovering/Resolving]

NARRATIVE: CASE EVENT DATE: 20131025
